FAERS Safety Report 9613281 (Version 1)
Quarter: 2013Q4

REPORT INFORMATION
  Report Type: Spontaneous
  Country: JP (occurrence: JP)
  Receive Date: 20131010
  Receipt Date: 20131010
  Transmission Date: 20140711
  Serious: Yes (Hospitalization)
  Sender: FDA-Public Use
  Company Number: JP-ROCHE-1286692

PATIENT
  Age: 81 Year
  Sex: Male

DRUGS (13)
  1. RITUXIMAB [Suspect]
     Indication: MANTLE CELL LYMPHOMA
     Route: 042
     Dates: start: 200703
  2. RITUXIMAB [Suspect]
     Route: 042
     Dates: start: 200710
  3. RITUXIMAB [Suspect]
     Dosage: 2 COURSES
     Route: 042
     Dates: start: 200808
  4. ZEVALIN INDIUM [Suspect]
     Indication: MANTLE CELL LYMPHOMA
     Dosage: SINGLE
     Route: 042
     Dates: start: 20081007, end: 20081007
  5. ZEVALIN YTTRIUM [Suspect]
     Indication: MANTLE CELL LYMPHOMA
     Dosage: 11.1 MBQ/KG SINGLE
     Route: 042
     Dates: start: 20081014, end: 20081014
  6. CYCLOPHOSPHAMIDE [Suspect]
     Indication: MANTLE CELL LYMPHOMA
     Dosage: 2 COURSES
     Route: 065
     Dates: start: 200808
  7. PIRARUBICIN HYDROCHLORIDE [Suspect]
     Indication: MANTLE CELL LYMPHOMA
     Route: 065
  8. VINCRISTINE SULFATE [Suspect]
     Indication: MANTLE CELL LYMPHOMA
     Route: 065
  9. PREDNISOLONE ACETATE [Suspect]
     Indication: MANTLE CELL LYMPHOMA
     Route: 065
  10. FLUDARABINE PHOSPHATE [Suspect]
     Indication: MANTLE CELL LYMPHOMA
     Route: 065
     Dates: start: 200710
  11. FLUDARABINE PHOSPHATE [Suspect]
     Dosage: 2 COURSES
     Route: 065
     Dates: start: 200808
  12. RAD001 [Suspect]
     Indication: MANTLE CELL LYMPHOMA
     Route: 065
     Dates: start: 200806
  13. MITOXANTRONE HYDROCHLORIDE [Suspect]
     Indication: MANTLE CELL LYMPHOMA
     Dosage: 2 COURSES
     Route: 065
     Dates: start: 200808

REACTIONS (1)
  - Myelodysplastic syndrome [Not Recovered/Not Resolved]
